FAERS Safety Report 4416517-X (Version None)
Quarter: 2004Q3

REPORT INFORMATION
  Report Type: 
  Country: None (occurrence: None)
  Receive Date: 20040802
  Receipt Date: 20040719
  Transmission Date: 20050211
  Serious: Yes (Hospitalization)
  Sender: FDA-Public Use
  Company Number: 2004040232

PATIENT
  Age: 57 Year
  Sex: Female
  Weight: 48 kg

DRUGS (2)
  1. ZOLOFT [Suspect]
     Indication: DEPRESSION
     Dosage: 100 MG (2 IN 1 D), ORAL
     Route: 048
     Dates: start: 20040323, end: 20040425
  2. ALPRAZOLAM [Concomitant]

REACTIONS (2)
  - ANXIETY [None]
  - PANCREATITIS CHRONIC [None]
